FAERS Safety Report 4632522-2 (Version None)
Quarter: 2005Q2

REPORT INFORMATION
  Report Type: 
  Country: None (occurrence: None)
  Receive Date: 20050411
  Receipt Date: 20050404
  Transmission Date: 20051028
  Serious: Yes (Death)
  Sender: FDA-Public Use
  Company Number: 05-04-0558

PATIENT
  Age: 75 Year
  Sex: Male

DRUGS (5)
  1. FLUOXETINE [Suspect]
     Indication: DEPRESSION
     Dosage: 20 MG QD ORAL
     Route: 048
     Dates: start: 20020630, end: 20020709
  2. PROPOFOL [Concomitant]
  3. ALFENTANIL [Concomitant]
  4. MIDAZOLAM HCL [Concomitant]
  5. AMIODARONE HCL [Concomitant]

REACTIONS (4)
  - ACUTE RESPIRATORY DISTRESS SYNDROME [None]
  - MULTI-ORGAN FAILURE [None]
  - PEMPHIGOID [None]
  - TOXIC EPIDERMAL NECROLYSIS [None]
